FAERS Safety Report 6742480-2 (Version None)
Quarter: 2010Q2

REPORT INFORMATION
  Report Type: 
  Country: None (occurrence: None)
  Receive Date: 20100526
  Receipt Date: 20100519
  Transmission Date: 20101027
  Serious: Yes (Other)
  Sender: FDA-Public Use
  Company Number: JP-PFIZER INC-2010063904

PATIENT
  Sex: Female

DRUGS (2)
  1. LIPITOR [Suspect]
     Dosage: 10 MG, 1X/DAY
     Dates: start: 20070101
  2. LIPITOR [Suspect]
     Dosage: 5 MG, 1X/DAY

REACTIONS (6)
  - CHROMATURIA [None]
  - MYALGIA [None]
  - NAIL DISORDER [None]
  - PERIPHERAL COLDNESS [None]
  - PRURITUS [None]
  - SKIN TIGHTNESS [None]
